FAERS Safety Report 10642819 (Version 1)
Quarter: 2014Q4

REPORT INFORMATION
  Report Type: Spontaneous
  Country: US (occurrence: US)
  Receive Date: 20141210
  Receipt Date: 20141210
  Transmission Date: 20150529
  Serious: Yes (Other)
  Sender: FDA-Public Use
  Company Number: US-GLAXOSMITHKLINE-US2014GSK033265

PATIENT
  Sex: Female

DRUGS (1)
  1. VENTOLIN [Suspect]
     Active Substance: ALBUTEROL SULFATE
     Indication: DYSPNOEA

REACTIONS (5)
  - Cancer surgery [Unknown]
  - Influenza [Unknown]
  - Malaise [Unknown]
  - Inhalation therapy [Unknown]
  - Stress [Unknown]

NARRATIVE: CASE EVENT DATE: 2008
